FAERS Safety Report 6405917-4 (Version None)
Quarter: 2009Q4

REPORT INFORMATION
  Report Type: 
  Country: None (occurrence: None)
  Receive Date: 20091016
  Receipt Date: 20091016
  Transmission Date: 20100525
  Serious: Yes (Other)
  Sender: FDA-Public Use
  Company Number: None

PATIENT
  Age: 15 Year
  Sex: Female
  Weight: 83.4619 kg

DRUGS (1)
  1. OCELLA [Suspect]
     Indication: POLYCYSTIC OVARIES
     Dosage: 1 PER DAY PO
     Route: 048
     Dates: start: 20081010, end: 20090831

REACTIONS (3)
  - CHOLECYSTECTOMY [None]
  - CHOLELITHIASIS [None]
  - PAIN [None]
